FAERS Safety Report 13367656 (Version 1)
Quarter: 2017Q1

REPORT INFORMATION
  Report Type: Report from Study
  Country: BR (occurrence: BR)
  Receive Date: 20170324
  Receipt Date: 20170324
  Transmission Date: 20170429
  Serious: Yes (Other)
  Sender: FDA-Public Use
  Company Number: BR-ROCHE-1909794

PATIENT
  Age: 55 Year
  Sex: Male
  Weight: 70 kg

DRUGS (4)
  1. AVASTIN [Suspect]
     Active Substance: BEVACIZUMAB
     Indication: COLORECTAL CANCER
     Route: 042
     Dates: start: 20160601, end: 20161001
  2. FLUOROURACIL. [Concomitant]
     Active Substance: FLUOROURACIL
     Indication: COLORECTAL CANCER
     Dosage: PATIENT REMAINED 4 CYCLES WITH THIS REGIMEN
     Route: 065
     Dates: end: 20161001
  3. FOLINIC ACID [Concomitant]
     Active Substance: LEUCOVORIN
     Indication: COLORECTAL CANCER
     Dosage: PATIENT REMAINED 4 CYCLES WITH THIS REGIMEN
     Route: 065
     Dates: end: 20161001
  4. OXALIPLATIN. [Concomitant]
     Active Substance: OXALIPLATIN
     Indication: COLORECTAL CANCER
     Dosage: PATIENT REMAINED 4 CYCLES WITH THIS REGIMEN
     Route: 065
     Dates: end: 20161001

REACTIONS (2)
  - Disease progression [Unknown]
  - Drug ineffective [Unknown]
